FAERS Safety Report 8958268 (Version 1)
Quarter: 2012Q4

REPORT INFORMATION
  Report Type: 
  Country: US (occurrence: US)
  Receive Date: 20121211
  Receipt Date: 20121211
  Transmission Date: 20130627
  Serious: Yes (Hospitalization, Other)
  Sender: FDA-Public Use
  Company Number: US-SHIRE-ALL1-2012-05936

PATIENT
  Age: 3 Year
  Sex: Male

DRUGS (1)
  1. VYVANSE [Suspect]
     Indication: ACCIDENTAL EXPOSURE TO PRODUCT
     Dosage: UNK, One dose (ingested 2-3 capsules)
     Route: 048
     Dates: start: 20120811, end: 20120811

REACTIONS (1)
  - Accidental exposure to product by child [Recovered/Resolved]
